FAERS Safety Report 5188051-3 (Version None)
Quarter: 2006Q4

REPORT INFORMATION
  Report Type: 
  Country: None (occurrence: None)
  Receive Date: 20061221
  Receipt Date: 20061204
  Transmission Date: 20070319
  Serious: Yes (Other)
  Sender: FDA-Public Use
  Company Number: PHFR2006GB03564

PATIENT

DRUGS (1)
  1. NEORAL [Suspect]
     Indication: TRANSPLANT
     Route: 065

REACTIONS (2)
  - COLONIC PSEUDO-OBSTRUCTION [None]
  - SURGERY [None]
